FAERS Safety Report 5978185-5 (Version None)
Quarter: 2008Q4

REPORT INFORMATION
  Report Type: 
  Country: None (occurrence: None)
  Receive Date: 20081204
  Receipt Date: 20081119
  Transmission Date: 20090506
  Serious: Yes (Death)
  Sender: FDA-Public Use
  Company Number: US-RB-006958-08

PATIENT
  Age: 4 Month
  Sex: Female

DRUGS (4)
  1. DEXTROMETHORPHAN HYDROBROMIDE [Suspect]
  2. ATROPINE [Suspect]
  3. PSEUDOEPHEDRINE HCL [Suspect]
  4. CARBINOXAMINE [Suspect]

REACTIONS (1)
  - SUDDEN INFANT DEATH SYNDROME [None]
